FAERS Safety Report 4382054-4 (Version None)
Quarter: 2004Q2

REPORT INFORMATION
  Report Type: 
  Country: None (occurrence: None)
  Receive Date: 20040615
  Receipt Date: 20040524
  Transmission Date: 20050107
  Serious: Yes (Hospitalization)
  Sender: FDA-Public Use
  Company Number: A0511938A

PATIENT
  Age: 49 Year
  Sex: Female

DRUGS (3)
  1. NICODERM CQ [Suspect]
     Indication: EX-SMOKER
     Dosage: TRANSDERMAL
     Route: 062
     Dates: start: 20020101
  2. PAIN MEDICATION [Concomitant]
  3. ALLERGY MEDICATION [Concomitant]

REACTIONS (2)
  - DYSGEUSIA [None]
  - LUNG NEOPLASM MALIGNANT [None]
